FAERS Safety Report 9477748 (Version 3)
Quarter: 2014Q2

REPORT INFORMATION
  Report Type: Spontaneous
  Country: US (occurrence: US)
  Receive Date: 20130827
  Receipt Date: 20140402
  Transmission Date: 20141212
  Serious: Yes (Other)
  Sender: FDA-Public Use
  Company Number: US-AMGEN-USASP2013058933

PATIENT
  Age: 50 Year
  Sex: Female

DRUGS (5)
  1. XGEVA [Suspect]
     Indication: BREAST CANCER METASTATIC
     Dosage: UNK
     Route: 065
     Dates: start: 20110822, end: 20130607
  2. ARIMIDEX [Concomitant]
     Indication: METASTATIC NEOPLASM
     Dosage: UNK
     Dates: start: 2012
  3. FASLODEX                           /01285001/ [Concomitant]
     Indication: MALIGNANT NEOPLASM PROGRESSION
     Dosage: UNK
     Dates: start: 2012
  4. AROMASIN [Concomitant]
     Indication: MALIGNANT NEOPLASM PROGRESSION
     Dosage: UNK
     Dates: start: 201205
  5. AFINITOR [Concomitant]
     Indication: MALIGNANT NEOPLASM PROGRESSION
     Dosage: 10 MG, 3 TIMES/WK
     Dates: start: 201205

REACTIONS (6)
  - Osteonecrosis of jaw [Not Recovered/Not Resolved]
  - Tooth disorder [Unknown]
  - Stomatitis [Recovered/Resolved]
  - Cough [Unknown]
  - Productive cough [Unknown]
  - Carbohydrate antigen 27.29 increased [Unknown]
